FAERS Safety Report 4846359-2 (Version None)
Quarter: 2005Q4

REPORT INFORMATION
  Report Type: 
  Country: None (occurrence: None)
  Receive Date: 20051206
  Receipt Date: 20051201
  Transmission Date: 20060501
  Serious: Yes (Hospitalization)
  Sender: FDA-Public Use
  Company Number: ES-BRISTOL-MYERS SQUIBB COMPANY-13200597

PATIENT
  Age: 58 Year
  Sex: Male
  Weight: 120 kg

DRUGS (7)
  1. CISPLATIN [Suspect]
     Indication: NON-SMALL CELL LUNG CANCER
     Route: 042
     Dates: start: 20051107, end: 20051107
  2. PEMETREXED DISODIUM [Suspect]
     Indication: NON-SMALL CELL LUNG CANCER
     Route: 042
     Dates: start: 20051107, end: 20051107
  3. FOLIC ACID [Concomitant]
     Dates: start: 20051026
  4. VITAMIN B-12 [Concomitant]
     Dates: start: 20051026
  5. ALLOPURINOL [Concomitant]
     Indication: HYPERURICAEMIA
  6. OMEPRAZOLE [Concomitant]
     Indication: PROPHYLAXIS
  7. CORTICOSTEROID [Concomitant]

REACTIONS (1)
  - CEREBRAL INFARCTION [None]
